FAERS Safety Report 7851992-X (Version None)
Quarter: 2011Q4

REPORT INFORMATION
  Report Type: 
  Country: None (occurrence: None)
  Receive Date: 20111026
  Receipt Date: 20111017
  Transmission Date: 20120403
  Serious: Yes (Disabling)
  Sender: FDA-Public Use
  Company Number: FR-ASTRAZENECA-2011SE62632

PATIENT
  Age: 23440 Day
  Sex: Male

DRUGS (4)
  1. NEXIUM [Suspect]
     Indication: PRODUCT USED FOR UNKNOWN INDICATION
     Route: 048
     Dates: start: 20110919
  2. TENORMIN [Suspect]
     Indication: AORTIC DISSECTION
     Route: 048
     Dates: start: 20110919, end: 20110922
  3. XANAX [Suspect]
     Indication: ANXIETY
     Route: 048
     Dates: start: 20110919, end: 20110919
  4. EUPRESSYL [Suspect]
     Indication: AORTIC DISSECTION
     Dosage: 25 TO 50 MG/H
     Route: 042
     Dates: start: 20110919, end: 20110920

REACTIONS (1)
  - PRIAPISM [None]
